FAERS Safety Report 23999169 (Version 1)
Quarter: 2024Q2

REPORT INFORMATION
  Report Type: Report from Study
  Country: IN (occurrence: IN)
  Receive Date: 20240621
  Receipt Date: 20240621
  Transmission Date: 20240716
  Serious: Yes (Other)
  Sender: FDA-Public Use
  Company Number: IN-002147023-NVSC2024IN121546

PATIENT
  Age: 37 Year
  Sex: Male
  Weight: 74 kg

DRUGS (2)
  1. RANIBIZUMAB [Suspect]
     Active Substance: RANIBIZUMAB
     Indication: Retinal vein occlusion
     Dosage: 0.05 MG, QMO (VIAL)
     Route: 050
     Dates: start: 20240210, end: 20240408
  2. RANIBIZUMAB [Suspect]
     Active Substance: RANIBIZUMAB
     Indication: Cystoid macular oedema

REACTIONS (1)
  - Cystoid macular oedema [Unknown]

NARRATIVE: CASE EVENT DATE: 20240519
